FAERS Safety Report 17326292 (Version 1)
Quarter: 2020Q1

REPORT INFORMATION
  Report Type: Spontaneous
  Country: GB (occurrence: GB)
  Receive Date: 20200127
  Receipt Date: 20200127
  Transmission Date: 20200409
  Serious: Yes (Other)
  Sender: FDA-Public Use
  Company Number: GB-MYLANLABS-2020M1007968

PATIENT
  Age: 66 Year
  Sex: Female
  Weight: 132 kg

DRUGS (26)
  1. HYDROXOCOBALAMIN [Concomitant]
     Active Substance: HYDROXOCOBALAMIN
     Dosage: USE AS DIRECTED
     Dates: start: 20190904
  2. CALCIPOTRIOL [Concomitant]
     Active Substance: CALCIPOTRIENE
     Indication: PSORIASIS
     Dosage: APPLY AS DIRECTED.
     Dates: start: 20190308
  3. SIMVASTATIN. [Concomitant]
     Active Substance: SIMVASTATIN
     Dosage: AT NIGHT.
     Dates: start: 20190308
  4. ACETYLSALICYLIC ACID [Concomitant]
     Active Substance: ASPIRIN
     Dosage: 1 DOSAGE FORM, QD
     Dates: start: 20190308
  5. FUSIDIC ACID [Concomitant]
     Active Substance: FUSIDIC ACID
     Dosage: USE AS DIRECTED- TWICE DAILY ON RED /SORE ELBOW
     Dates: start: 20190903, end: 20191001
  6. DOXYCYCLINE. [Concomitant]
     Active Substance: DOXYCYCLINE
     Dosage: UNK (TWO NOW THEN ONE DAILY)
     Dates: start: 20190903, end: 20190910
  7. ADCAL                              /07357001/ [Concomitant]
     Active Substance: CALCIUM CARBONATE
     Dosage: 4 DOSAGE FORM, QD
     Dates: start: 20190308
  8. PREDNISOLONE. [Concomitant]
     Active Substance: PREDNISOLONE
     Dosage: REDUCING COURSE- FOR 3 DAY.
     Dates: start: 20190903
  9. FEXOFENADINE [Concomitant]
     Active Substance: FEXOFENADINE HYDROCHLORIDE
     Dosage: 2 DOSAGE FORM, QD
     Dates: start: 20190308
  10. TEMAZEPAM. [Suspect]
     Active Substance: TEMAZEPAM
     Indication: PRODUCT USED FOR UNKNOWN INDICATION
     Dosage: 10 MILLIGRAM, PRN (AT NIGHT)
     Dates: start: 20191029
  11. CETRABEN                           /01690401/ [Concomitant]
     Indication: DRY SKIN
     Dosage: USE ALL OVER, EMOLLIENT CREAM
     Route: 061
     Dates: start: 20190308
  12. FUROSEMIDE. [Concomitant]
     Active Substance: FUROSEMIDE
     Dosage: 1 DOSAGE FORM, QD (EACH MORNING ALONG WITH 40 MG TABLETS)
     Dates: start: 20190308
  13. PARACETAMOL [Concomitant]
     Active Substance: ACETAMINOPHEN
     Dosage: PRN (TAKE 1 OR 2 4 TIMES/DAY)
     Dates: start: 20190308
  14. ZOPICLONE [Concomitant]
     Active Substance: ZOPICLONE
     Dosage: PRN (TAKE ONE TO TWO  AT NIGHT)
     Dates: start: 20190808, end: 20190822
  15. RAMIPRIL. [Concomitant]
     Active Substance: RAMIPRIL
     Dosage: 1 DOSAGE FORM, QD
     Dates: start: 20190308
  16. CODEINE PHOSPHATE [Concomitant]
     Active Substance: CODEINE PHOSPHATE
     Dosage: PRN (1-2 TO BE TAKEN FOUR TIMES DAILY)
     Dates: start: 20190308
  17. SEEBRI BREEZHALER [Concomitant]
     Active Substance: GLYCOPYRROLATE
     Dosage: 1 DOSAGE FORM, QD
     Route: 055
     Dates: start: 20190308
  18. CLARITHROMYCIN. [Concomitant]
     Active Substance: CLARITHROMYCIN
     Dosage: 1 DOSAGE FORM, BID
     Dates: start: 20190927, end: 20191007
  19. SYMBICORT [Concomitant]
     Active Substance: BUDESONIDE\FORMOTEROL FUMARATE DIHYDRATE
     Dosage: USE AS DIRECTED.
     Dates: start: 20190308
  20. COCODAMOL [Concomitant]
     Active Substance: ACETAMINOPHEN\CODEINE PHOSPHATE
     Dosage: PRN (1-2 TO BE TAKEN THREE TIMES DAILY)
     Dates: start: 20190308
  21. WHITE SOFT PARAFFIN [Concomitant]
     Active Substance: PARAFFIN
     Dosage: PRN
     Dates: start: 20190311
  22. ENSTILAR [Concomitant]
     Active Substance: BETAMETHASONE DIPROPIONATE\CALCIPOTRIENE HYDRATE
     Dosage: APPLY ONCE DAILY.
     Dates: start: 20190308
  23. FOLIC ACID. [Concomitant]
     Active Substance: FOLIC ACID
     Dosage: 1 DOSAGE FORM, QD
     Dates: start: 20190903, end: 20191001
  24. LEVOTHYROXINE. [Concomitant]
     Active Substance: LEVOTHYROXINE
     Dosage: EACH MORNING.
     Dates: start: 20190308
  25. PREGABALIN. [Concomitant]
     Active Substance: PREGABALIN
     Dosage: TAKE UP TO 3 THREE TIMES A DAY.
     Dates: start: 20190308
  26. DULOXETINE. [Concomitant]
     Active Substance: DULOXETINE
     Dosage: 1 DOSAGE FORM, QD
     Dates: start: 20190308

REACTIONS (2)
  - Respiration abnormal [Recovered/Resolved]
  - Dry mouth [Unknown]

NARRATIVE: CASE EVENT DATE: 20191030
